FAERS Safety Report 6330322-9 (Version None)
Quarter: 2009Q3

REPORT INFORMATION
  Report Type: 
  Country: None (occurrence: None)
  Receive Date: 20090826
  Receipt Date: 20090826
  Transmission Date: 20100115
  Serious: Yes (Life-Threatening, Hospitalization, Other)
  Sender: FDA-Public Use
  Company Number: None

PATIENT
  Age: 48 Year
  Sex: Female
  Weight: 102.1 kg

DRUGS (3)
  1. NOVOLOG MIX 70/30 [Suspect]
     Indication: DIABETES MELLITUS
     Dosage: QD SC
     Route: 058
     Dates: start: 20060607, end: 20060614
  2. VYTORIN [Concomitant]
  3. LEXAPRO [Concomitant]

REACTIONS (14)
  - AMNESIA [None]
  - BLOOD PRESSURE SYSTOLIC INCREASED [None]
  - EXCORIATION [None]
  - FOREARM FRACTURE [None]
  - HYPOGLYCAEMIA [None]
  - LOSS OF CONSCIOUSNESS [None]
  - MOUTH INJURY [None]
  - PAIN IN EXTREMITY [None]
  - ROAD TRAFFIC ACCIDENT [None]
  - SKIN LACERATION [None]
  - SOMNOLENCE [None]
  - SPINAL FRACTURE [None]
  - TACHYCARDIA [None]
  - TENDERNESS [None]
